FAERS Safety Report 15130358 (Version 1)
Quarter: 2018Q3

REPORT INFORMATION
  Report Type: Spontaneous
  Country: US (occurrence: US)
  Receive Date: 20180711
  Receipt Date: 20180711
  Transmission Date: 20181010
  Serious: Yes (Hospitalization)
  Sender: FDA-Public Use
  Company Number: US-JNJFOC-20180705176

PATIENT
  Age: 71 Year
  Sex: Female
  Weight: 108.41 kg

DRUGS (1)
  1. INVOKANA [Suspect]
     Active Substance: CANAGLIFLOZIN
     Indication: DIABETES MELLITUS
     Dosage: STARTED 3?4 YEARS AGO; IN THE EVENING
     Route: 048
     Dates: end: 201806

REACTIONS (4)
  - Off label use [Unknown]
  - Pancreatitis [Recovering/Resolving]
  - Inappropriate schedule of drug administration [Unknown]
  - Diabetic ketoacidosis [Recovering/Resolving]

NARRATIVE: CASE EVENT DATE: 201806
